FAERS Safety Report 7762918-1 (Version None)
Quarter: 2011Q3

REPORT INFORMATION
  Report Type: 
  Country: None (occurrence: None)
  Receive Date: 20110920
  Receipt Date: 20110912
  Transmission Date: 20111222
  Serious: Yes (Other)
  Sender: FDA-Public Use
  Company Number: PHHY2011ES81184

PATIENT
  Age: 39 Year
  Sex: Female

DRUGS (2)
  1. RANITIDINE HYDROCHLORIDE [Suspect]
  2. PYRIDOXINE HYDROCHLORIDE [Suspect]

REACTIONS (6)
  - SKIN LESION [None]
  - ECZEMA [None]
  - ERYTHEMA [None]
  - OEDEMA [None]
  - DERMATITIS CONTACT [None]
  - PRURITUS [None]
